FAERS Safety Report 9171458 (Version 1)
Quarter: 2013Q1

REPORT INFORMATION
  Report Type: Spontaneous
  Country: CN (occurrence: CN)
  Receive Date: 20130319
  Receipt Date: 20130319
  Transmission Date: 20140127
  Serious: Yes (Other)
  Sender: FDA-Public Use
  Company Number: CN-ROCHE-1202399

PATIENT
  Age: 34 Year
  Sex: Male
  Weight: 60 kg

DRUGS (1)
  1. AVASTIN [Suspect]
     Indication: COLON CANCER
     Route: 042
     Dates: start: 20130310

REACTIONS (1)
  - Bone marrow failure [Not Recovered/Not Resolved]
